FAERS Safety Report 21310179 (Version 1)
Quarter: 2022Q3

REPORT INFORMATION
  Report Type: Spontaneous
  Country: US (occurrence: US)
  Receive Date: 20220909
  Receipt Date: 20220909
  Transmission Date: 20221026
  Serious: Yes (Other)
  Sender: FDA-Public Use
  Company Number: US-TEVA-2022-US-2071193

PATIENT
  Age: 81 Year
  Sex: Male

DRUGS (1)
  1. AUSTEDO [Suspect]
     Active Substance: DEUTETRABENAZINE
     Indication: Product used for unknown indication
     Dosage: 15 MILLIGRAM DAILY; 6MG IN THE MORNING AND 9MG IN THE EVENING
     Route: 065
     Dates: start: 20220617

REACTIONS (3)
  - Dementia Alzheimer^s type [Unknown]
  - Dysphagia [Unknown]
  - Wrong technique in product usage process [Unknown]

NARRATIVE: CASE EVENT DATE: 20220101
